FAERS Safety Report 26213484 (Version 1)
Quarter: 2025Q4

REPORT INFORMATION
  Report Type: Spontaneous
  Country: EU (occurrence: EU)
  Receive Date: 20251230
  Receipt Date: 20251230
  Transmission Date: 20260117
  Serious: Yes (Other)
  Sender: MYLAN
  Company Number: None

PATIENT
  Age: 22 Year
  Sex: Female
  Weight: 79 kg

DRUGS (2)
  1. CELECOXIB [Suspect]
     Active Substance: CELECOXIB
     Indication: Inflammation
     Dosage: 200 MILLIGRAM, BID
     Dates: start: 20251015, end: 20251201
  2. ETHINYL ESTRADIOL\LEVONORGESTREL [Concomitant]
     Active Substance: ETHINYL ESTRADIOL\LEVONORGESTREL
     Indication: Contraception
     Dosage: 1 DOSAGE FORM, QD
     Dates: start: 20210928

REACTIONS (3)
  - Arrhythmia [Recovered/Resolved]
  - Pollakiuria [Recovering/Resolving]
  - Heart rate increased [Recovered/Resolved]

NARRATIVE: CASE EVENT DATE: 20251015
